FAERS Safety Report 4833577-2 (Version None)
Quarter: 2005Q4

REPORT INFORMATION
  Report Type: 
  Country: None (occurrence: None)
  Receive Date: 20051121
  Receipt Date: 20051005
  Transmission Date: 20060501
  Serious: Yes (Death)
  Sender: FDA-Public Use
  Company Number: US-MERCK-0510POL00005

PATIENT
  Sex: Male

DRUGS (1)
  1. VIOXX [Suspect]
     Route: 048
     Dates: start: 20010901, end: 20040101

REACTIONS (3)
  - CARDIOVASCULAR DISORDER [None]
  - CIRCULATORY COLLAPSE [None]
  - RESPIRATORY DISORDER [None]
